FAERS Safety Report 7123785-2 (Version None)
Quarter: 2010Q4

REPORT INFORMATION
  Report Type: 
  Country: None (occurrence: None)
  Receive Date: 20101125
  Receipt Date: 20101115
  Transmission Date: 20110411
  Serious: Yes (Other)
  Sender: FDA-Public Use
  Company Number: PHHY2010US78959

PATIENT
  Sex: Female

DRUGS (7)
  1. RECLAST [Suspect]
     Route: 042
  2. CALCIUM PLUS D [Concomitant]
  3. VITAMIN D [Concomitant]
     Dosage: 2000 MG
  4. OSCAL PLUS D [Concomitant]
  5. REGLAN [Concomitant]
  6. FLEXERAL [Concomitant]
  7. LEXAPRO [Concomitant]

REACTIONS (8)
  - CLAVICLE FRACTURE [None]
  - FALL [None]
  - FEMUR FRACTURE [None]
  - FOOT FRACTURE [None]
  - GASTRIC DISORDER [None]
  - HAND FRACTURE [None]
  - INTRAMEDULLARY ROD INSERTION [None]
  - VITAMIN D DECREASED [None]
